FAERS Safety Report 4385672-2 (Version None)
Quarter: 2004Q2

REPORT INFORMATION
  Report Type: 
  Country: None (occurrence: None)
  Receive Date: 20040625
  Receipt Date: 20040625
  Transmission Date: 20050107
  Serious: Yes (Disabling)
  Sender: FDA-Public Use
  Company Number: None

PATIENT
  Age: 48 Year
  Sex: Female
  Weight: 94.3482 kg

DRUGS (7)
  1. REBIF [Suspect]
     Indication: MULTIPLE SCLEROSIS
     Dosage: SQ 3X WEEK
     Route: 058
     Dates: start: 20040501
  2. GLUCOPHAGE [Concomitant]
  3. VIOXX [Concomitant]
  4. LEVAPRO [Concomitant]
  5. ACTOS [Concomitant]
  6. DITROPAN [Concomitant]
  7. DEXEDRINE [Concomitant]

REACTIONS (1)
  - PERICARDITIS [None]
